FAERS Safety Report 10530191 (Version 1)
Quarter: 2014Q4

REPORT INFORMATION
  Report Type: Spontaneous
  Country: HU (occurrence: HU)
  Receive Date: 20141021
  Receipt Date: 20141021
  Transmission Date: 20150528
  Serious: Yes (Death, Life-Threatening)
  Sender: FDA-Public Use
  Company Number: HU-ROCHE-1475952

PATIENT
  Age: 80 Year
  Sex: Female

DRUGS (1)
  1. ACTILYSE [Suspect]
     Active Substance: ALTEPLASE
     Indication: CEREBROVASCULAR ACCIDENT
     Dosage: 4 MG FOLLOWED BY THE ADMINISTRATION OF 36 MG USING A PERFUSOR DEVICE.
     Route: 042
     Dates: start: 20140929, end: 20140929

REACTIONS (3)
  - Hypotension [Recovered/Resolved]
  - Death [Fatal]
  - Swollen tongue [Recovered/Resolved]

NARRATIVE: CASE EVENT DATE: 20140929
